FAERS Safety Report 18931953 (Version 1)
Quarter: 2021Q1

REPORT INFORMATION
  Report Type: Report from Study
  Country: US (occurrence: US)
  Receive Date: 20210224
  Receipt Date: 20210224
  Transmission Date: 20210420
  Serious: No
  Sender: FDA-Public Use
  Company Number: US-BIOVITRUM-2020US6120

PATIENT
  Sex: Female

DRUGS (22)
  1. KINERET [Suspect]
     Active Substance: ANAKINRA
     Indication: RHEUMATOID ARTHRITIS
     Route: 058
     Dates: start: 20201030
  2. AXON [Concomitant]
     Active Substance: CEFTRIAXONE SODIUM
  3. AMLODIPINE [Concomitant]
     Active Substance: AMLODIPINE BESYLATE
  4. BUSPIRONE [Concomitant]
     Active Substance: BUSPIRONE HYDROCHLORIDE
  5. PRILOCAINE [Concomitant]
     Active Substance: PRILOCAINE
  6. HYDROCODONE [Concomitant]
     Active Substance: HYDROCODONE
  7. HORIZANT [Concomitant]
     Active Substance: GABAPENTIN ENACARBIL
  8. TIZANIDINE. [Concomitant]
     Active Substance: TIZANIDINE
  9. LIDOCAINE. [Concomitant]
     Active Substance: LIDOCAINE
  10. CARTIA [Concomitant]
  11. CYMBALTA [Concomitant]
     Active Substance: DULOXETINE HYDROCHLORIDE
  12. PREDNISONE. [Concomitant]
     Active Substance: PREDNISONE
  13. BENTYL [Concomitant]
     Active Substance: DICYCLOMINE HYDROCHLORIDE
  14. OMEPRAZOLE. [Concomitant]
     Active Substance: OMEPRAZOLE
  15. VOLTAREN [Concomitant]
     Active Substance: DICLOFENAC SODIUM
  16. BASAGLAR [Concomitant]
     Active Substance: INSULIN GLARGINE
  17. HUMALOG [Concomitant]
     Active Substance: INSULIN LISPRO
  18. LISINOPRIL. [Concomitant]
     Active Substance: LISINOPRIL
  19. PRAVASTATIN. [Concomitant]
     Active Substance: PRAVASTATIN
  20. KINERET [Suspect]
     Active Substance: ANAKINRA
     Route: 058
     Dates: start: 20201029, end: 20210215
  21. ZETIA [Concomitant]
     Active Substance: EZETIMIBE
  22. HYSINGLA ER [Concomitant]
     Active Substance: HYDROCODONE BITARTRATE

REACTIONS (11)
  - Injection site bruising [Unknown]
  - Goitre [Unknown]
  - Syringe issue [Unknown]
  - Drug ineffective [Unknown]
  - Pain in extremity [Unknown]
  - Condition aggravated [Unknown]
  - Injection site erythema [Unknown]
  - Injection site pain [Unknown]
  - Arthralgia [Unknown]
  - Injection site pruritus [Unknown]
  - Injection site reaction [Unknown]
